FAERS Safety Report 26058033 (Version 1)
Quarter: 2025Q4

REPORT INFORMATION
  Report Type: Spontaneous
  Country: US (occurrence: US)
  Receive Date: 20251118
  Receipt Date: 20251118
  Transmission Date: 20260117
  Serious: No
  Sender: ASTELLAS
  Company Number: US-ASTELLAS-2025-AER-063275

PATIENT
  Age: 76 Year
  Sex: Female

DRUGS (4)
  1. LEXISCAN [Suspect]
     Active Substance: REGADENOSON
     Indication: Cardiac stress test
     Route: 065
     Dates: start: 20251105, end: 20251105
  2. LEXISCAN [Suspect]
     Active Substance: REGADENOSON
  3. LEXISCAN [Suspect]
     Active Substance: REGADENOSON
  4. LEXISCAN [Suspect]
     Active Substance: REGADENOSON

REACTIONS (1)
  - Rash pruritic [Recovered/Resolved]

NARRATIVE: CASE EVENT DATE: 20251105
